FAERS Safety Report 22602576 (Version 5)
Quarter: 2024Q3

REPORT INFORMATION
  Report Type: Spontaneous
  Country: JP (occurrence: JP)
  Receive Date: 20230614
  Receipt Date: 20240704
  Transmission Date: 20241017
  Serious: Yes (Other)
  Sender: NOVARTIS
  Company Number: JP-002147023-NVSJ2023JP009342

PATIENT
  Age: 65 Year
  Sex: Female

DRUGS (1)
  1. COSENTYX [Suspect]
     Active Substance: SECUKINUMAB
     Indication: Psoriatic arthropathy
     Dosage: 300 MG, BIW
     Route: 058
     Dates: start: 20230111, end: 20230308

REACTIONS (1)
  - Sarcoidosis [Recovering/Resolving]

NARRATIVE: CASE EVENT DATE: 20230315
